FAERS Safety Report 9639197 (Version 2)
Quarter: 2013Q4

REPORT INFORMATION
  Report Type: Spontaneous
  Country: AU (occurrence: AU)
  Receive Date: 20131022
  Receipt Date: 20131113
  Transmission Date: 20140711
  Serious: Yes (Hospitalization)
  Sender: FDA-Public Use
  Company Number: AU-ROCHE-1287288

PATIENT
  Age: 46 Year
  Sex: Female

DRUGS (7)
  1. PERJETA [Suspect]
     Indication: BREAST CANCER
     Route: 042
     Dates: start: 20130912
  2. HERCEPTIN [Suspect]
     Indication: BREAST CANCER
     Route: 042
     Dates: start: 20130912
  3. DOCETAXEL [Suspect]
     Indication: BREAST CANCER
     Route: 042
     Dates: start: 20130912
  4. EMEND [Concomitant]
     Route: 065
     Dates: start: 20130912
  5. DEXAMETHASONE [Concomitant]
     Route: 042
     Dates: start: 20130912
  6. PHENERGAN [Concomitant]
     Route: 042
     Dates: start: 20130912
  7. ALOXI [Concomitant]
     Route: 042
     Dates: start: 20130912

REACTIONS (1)
  - Fluid retention [Recovered/Resolved]
